FAERS Safety Report 10016169 (Version 2)
Quarter: 2014Q1

REPORT INFORMATION
  Report Type: Spontaneous
  Country: US (occurrence: US)
  Receive Date: 20140317
  Receipt Date: 20140317
  Transmission Date: 20141002
  Serious: Yes (Other)
  Sender: FDA-Public Use
  Company Number: US-ENDO PHARMACEUTICALS INC.-0909-SPO-SPLN-0129

PATIENT
  Age: 8 Year
  Sex: Female

DRUGS (1)
  1. SUPPRELIN LA [Suspect]
     Indication: PRECOCIOUS PUBERTY
     Route: 058
     Dates: start: 2006, end: 2011

REACTIONS (6)
  - Upper limb fracture [Recovered/Resolved]
  - Device expulsion [Recovered/Resolved]
  - Breast cyst [Not Recovered/Not Resolved]
  - Breast enlargement [Not Recovered/Not Resolved]
  - Drug administered at inappropriate site [Recovered/Resolved]
  - Breast pain [Not Recovered/Not Resolved]
